FAERS Safety Report 7811491-8 (Version None)
Quarter: 2011Q4

REPORT INFORMATION
  Report Type: 
  Country: None (occurrence: None)
  Receive Date: 20111013
  Receipt Date: 20111013
  Transmission Date: 20120403
  Serious: Yes (Other)
  Sender: FDA-Public Use
  Company Number: None

PATIENT
  Age: 55 Year
  Sex: Female

DRUGS (2)
  1. VENLAFAXINE HCL EXTENDED-RELEASE [Suspect]
     Indication: MAJOR DEPRESSION
     Dosage: 112.5MG
     Route: 048
     Dates: start: 20110922, end: 20111010
  2. VENLAFAXINE HCL ER CAPSULE [Concomitant]
     Dosage: 112.5MG
     Route: 048
     Dates: start: 20110714, end: 20110817

REACTIONS (5)
  - PRODUCT SUBSTITUTION ISSUE [None]
  - CONDITION AGGRAVATED [None]
  - DYSPEPSIA [None]
  - MAJOR DEPRESSION [None]
  - INSOMNIA [None]
